FAERS Safety Report 16069336 (Version 1)
Quarter: 2019Q1

REPORT INFORMATION
  Report Type: Report from Study
  Country: PT (occurrence: PT)
  Receive Date: 20190313
  Receipt Date: 20190313
  Transmission Date: 20190418
  Serious: Yes (Other)
  Sender: FDA-Public Use
  Company Number: PHHY2018PT199669

PATIENT
  Sex: Female
  Weight: 85 kg

DRUGS (2)
  1. ENTRESTO [Suspect]
     Active Substance: SACUBITRIL\VALSARTAN
     Dosage: 200 MG, BID (97 MG OF SACUBITRIL, 103 MG OF VALSARTAN)
     Route: 048
  2. ENTRESTO [Suspect]
     Active Substance: SACUBITRIL\VALSARTAN
     Indication: CARDIAC FAILURE
     Dosage: 100 MG, BID (49 MG OF SACUBITRIL, 51 MG OF VALSARTAN)
     Route: 048
     Dates: start: 201809

REACTIONS (2)
  - Hypertension [Not Recovered/Not Resolved]
  - Heart rate increased [Unknown]
